FAERS Safety Report 25912224 (Version 1)
Quarter: 2025Q4

REPORT INFORMATION
  Report Type: Spontaneous
  Country: EU (occurrence: EU)
  Receive Date: 20251013
  Receipt Date: 20251013
  Transmission Date: 20260118
  Serious: Yes (Other)
  Sender: ALKEM
  Company Number: EU-ALKEM LABORATORIES LIMITED-DE-ALKEM-2025-10793

PATIENT
  Age: 41 Year
  Sex: Female

DRUGS (4)
  1. EVEROLIMUS [Suspect]
     Active Substance: EVEROLIMUS
     Indication: Palliative care
     Dosage: 10 MILLIGRAM, QD (EVERY 1 DAY)
     Route: 048
     Dates: start: 201711
  2. EVEROLIMUS [Suspect]
     Active Substance: EVEROLIMUS
     Indication: Breast cancer
  3. EXEMESTANE [Suspect]
     Active Substance: EXEMESTANE
     Indication: Palliative care
     Dosage: 25 MILLIGRAM, QD (EVERY 1 DAY)
     Route: 048
     Dates: start: 201711
  4. EXEMESTANE [Suspect]
     Active Substance: EXEMESTANE
     Indication: Breast cancer

REACTIONS (1)
  - Metastases to pancreas [Unknown]

NARRATIVE: CASE EVENT DATE: 20180101
